FAERS Safety Report 4467314-0 (Version None)
Quarter: 2004Q4

REPORT INFORMATION
  Report Type: 
  Country: None (occurrence: None)
  Receive Date: 20041006
  Receipt Date: 20040817
  Transmission Date: 20050328
  Serious: Yes (Other)
  Sender: FDA-Public Use
  Company Number: DE-GLAXOSMITHKLINE-D0044480A

PATIENT
  Age: 65 Year
  Sex: Female
  Weight: 70 kg

DRUGS (5)
  1. LAMICTAL [Suspect]
     Indication: STATUS EPILEPTICUS
     Dosage: 250MG PER DAY
     Route: 048
     Dates: start: 19980101
  2. MADOPAR [Suspect]
     Indication: RESTLESS LEGS SYNDROME
     Route: 048
  3. INSULIN [Concomitant]
     Indication: DIABETES MELLITUS
     Route: 058
     Dates: start: 20020101
  4. CONCOR PLUS [Concomitant]
     Route: 048
  5. INSIDON [Concomitant]
     Route: 065

REACTIONS (1)
  - PRURITUS ANI [None]
